FAERS Safety Report 5629687-2 (Version None)
Quarter: 2008Q1

REPORT INFORMATION
  Report Type: 
  Country: None (occurrence: None)
  Receive Date: 20080214
  Receipt Date: 20080204
  Transmission Date: 20080703
  Serious: Yes (Death)
  Sender: FDA-Public Use
  Company Number: 2008-01090

PATIENT
  Age: 41 Year
  Sex: Male

DRUGS (4)
  1. CLONIDINE [Suspect]
  2. ENALAPRIL MALEATE [Suspect]
  3. CYCLOBENZAPRINE HCL [Suspect]
  4. ACETAMINOPHEN AND HYDROCODONE BITARTRATE [Suspect]

REACTIONS (1)
  - CARDIO-RESPIRATORY ARREST [None]
